FAERS Safety Report 5472650-5 (Version None)
Quarter: 2007Q4

REPORT INFORMATION
  Report Type: 
  Country: None (occurrence: None)
  Receive Date: 20071001
  Receipt Date: 20060829
  Transmission Date: 20080405
  Serious: No
  Sender: FDA-Public Use
  Company Number: US-ASTRAZENECA-2006UW15431

PATIENT
  Age: 68 Year
  Sex: Female
  Weight: 72.6 kg

DRUGS (4)
  1. ARIMIDEX [Suspect]
     Indication: BREAST CANCER
     Route: 048
     Dates: start: 20060701, end: 20060801
  2. FEMARA [Concomitant]
  3. TYLENOL (CAPLET) [Concomitant]
  4. VITAMINS [Concomitant]

REACTIONS (2)
  - ARTHRALGIA [None]
  - NOCTURIA [None]
